FAERS Safety Report 9263270 (Version 1)
Quarter: 2013Q2

REPORT INFORMATION
  Report Type: Spontaneous
  Country: DE (occurrence: DE)
  Receive Date: 20130430
  Receipt Date: 20130430
  Transmission Date: 20140414
  Serious: Yes (Other)
  Sender: FDA-Public Use
  Company Number: DE-TEVA-398545GER

PATIENT
  Age: 7 Year
  Sex: Male
  Weight: 19 kg

DRUGS (1)
  1. PENICILLIN V-RATIOPHARM [Suspect]
     Indication: TONSILLITIS
     Dosage: 15 ML DAILY;
     Route: 048
     Dates: start: 20121214, end: 20121218

REACTIONS (2)
  - Sudden onset of sleep [Recovered/Resolved]
  - Somnolence [Recovered/Resolved]
